FAERS Safety Report 7385891-7 (Version None)
Quarter: 2011Q1

REPORT INFORMATION
  Report Type: 
  Country: None (occurrence: None)
  Receive Date: 20110331
  Receipt Date: 20110321
  Transmission Date: 20110831
  Serious: Yes (Other)
  Sender: FDA-Public Use
  Company Number: FR-US-EMD SERONO, INC.-7048877

PATIENT
  Sex: Female

DRUGS (2)
  1. GONAL-F [Concomitant]
     Indication: IN VITRO FERTILISATION
  2. CETROTIDE [Suspect]
     Indication: IN VITRO FERTILISATION
     Route: 042
     Dates: start: 20110118

REACTIONS (1)
  - URTICARIA [None]
